FAERS Safety Report 17007099 (Version 1)
Quarter: 2019Q4

REPORT INFORMATION
  Report Type: Spontaneous
  Country: CN (occurrence: CN)
  Receive Date: 20191107
  Receipt Date: 20191107
  Transmission Date: 20200122
  Serious: Yes (Disabling)
  Sender: FDA-Public Use
  Company Number: CN-BAXTER-2019BAX022256

PATIENT
  Age: 47 Year
  Sex: Female
  Weight: 61 kg

DRUGS (10)
  1. 0.9% SODIUM CHLORIDE INJECTION [Suspect]
     Active Substance: SODIUM CHLORIDE
     Dosage: DOSE RE-INTRODUCED, 0.9% SODIUM CHLORIDE INJECTION + ENDOXAN
     Route: 041
     Dates: start: 201910
  2. 5% GLUCOSE  INJECTION [Suspect]
     Active Substance: DEXTROSE
     Dosage: 5% GLUCOSE 100 ML + PIRARUBICIN 40 MG, DAY2
     Route: 041
     Dates: start: 20191004, end: 20191004
  3. PIRARUBICIN HYDROCHLORIDE [Suspect]
     Active Substance: PIRARUBICIN HYDROCHLORIDE
     Indication: BREAST CANCER
     Dosage: 5% GLUCOSE 100 ML + PIRARUBICIN 50 MG DAY1
     Route: 041
     Dates: start: 20191003, end: 20191003
  4. ENDOXAN [Suspect]
     Active Substance: CYCLOPHOSPHAMIDE
     Dosage: DOSE RE-INTRODUCED, 0.9% SODIUM CHLORIDE INJECTION + ENDOXAN
     Route: 041
     Dates: start: 201910
  5. ENDOXAN [Suspect]
     Active Substance: CYCLOPHOSPHAMIDE
     Indication: BREAST CANCER
     Dosage: 0.9% SODIUM CHLORIDE INJECTION 100 ML + ENDOXAN, DAY1
     Route: 041
     Dates: start: 20191003, end: 20191003
  6. 0.9% SODIUM CHLORIDE INJECTION [Suspect]
     Active Substance: SODIUM CHLORIDE
     Indication: MEDICATION DILUTION
     Dosage: 0.9% SODIUM CHLORIDE INJECTION + ENDOXAN 900 MG, DAY1
     Route: 041
     Dates: start: 20191003, end: 20191003
  7. PIRARUBICIN HYDROCHLORIDE [Suspect]
     Active Substance: PIRARUBICIN HYDROCHLORIDE
     Dosage: 5% GLUCOSE 100 ML + PIRARUBICIN 40 MG DAY2
     Route: 041
     Dates: start: 20191004, end: 20191004
  8. PIRARUBICIN HYDROCHLORIDE [Suspect]
     Active Substance: PIRARUBICIN HYDROCHLORIDE
     Dosage: DOSE RE-INTRODUCED, 5% GLUCOSE + PIRARUBICIN
     Route: 041
     Dates: start: 201910
  9. 5% GLUCOSE  INJECTION [Suspect]
     Active Substance: DEXTROSE
     Indication: MEDICATION DILUTION
     Dosage: 5% GLUCOSE 100 ML + PIRARUBICIN 50 MG DAY1
     Route: 041
     Dates: start: 20191003, end: 20191003
  10. 5% GLUCOSE  INJECTION [Suspect]
     Active Substance: DEXTROSE
     Dosage: DOSE RE-INTRODUCED, 5% GLUCOSE + PIRARUBICIN
     Route: 041
     Dates: start: 201910

REACTIONS (1)
  - Hepatic function abnormal [Recovering/Resolving]

NARRATIVE: CASE EVENT DATE: 20191024
